FAERS Safety Report 10983551 (Version 3)
Quarter: 2015Q2

REPORT INFORMATION
  Report Type: Spontaneous
  Country: IT (occurrence: IT)
  Receive Date: 20150403
  Receipt Date: 20150504
  Transmission Date: 20150821
  Serious: Yes (Other)
  Sender: FDA-Public Use
  Company Number: IT-PFIZER INC-2015111585

PATIENT
  Age: 51 Year
  Sex: Male
  Weight: 80 kg

DRUGS (1)
  1. SUTENT [Suspect]
     Active Substance: SUNITINIB MALATE
     Indication: RENAL NEOPLASM
     Dosage: 50 MG, DAILY
     Route: 048
     Dates: start: 20150305, end: 20150323

REACTIONS (2)
  - Myocardial ischaemia [Recovering/Resolving]
  - Systolic dysfunction [Recovering/Resolving]

NARRATIVE: CASE EVENT DATE: 20150316
